FAERS Safety Report 7484258-0 (Version None)
Quarter: 2011Q2

REPORT INFORMATION
  Report Type: 
  Country: None (occurrence: None)
  Receive Date: 20110517
  Receipt Date: 20100917
  Transmission Date: 20111010
  Serious: Yes (Hospitalization)
  Sender: FDA-Public Use
  Company Number: US-BAYER-201035618NA

PATIENT
  Sex: Female
  Weight: 63.636 kg

DRUGS (24)
  1. IBUPROFEN [Concomitant]
     Dates: start: 20090916
  2. EFFEXOR [Concomitant]
  3. PRILOSEC [Concomitant]
  4. PEPCID [Concomitant]
  5. VERSED [Concomitant]
  6. ROCURONIUM BROMIDE [Concomitant]
  7. PROVENTIL [Concomitant]
  8. DROSPIRENONE AND ETHINYL ESTRADIOL [Suspect]
     Indication: PRODUCT USED FOR UNKNOWN INDICATION
     Route: 048
  9. TORADOL [Concomitant]
  10. YASMIN [Suspect]
     Indication: CONTRACEPTION
     Route: 048
     Dates: start: 20070101, end: 20090526
  11. YAZ [Suspect]
     Indication: CONTRACEPTION
     Route: 048
     Dates: start: 20070101, end: 20090526
  12. DICYCLOMINE [Concomitant]
  13. DIPRIVAN [Concomitant]
  14. MAGNESIUM [Concomitant]
     Indication: HYPOMAGNESAEMIA
     Route: 042
  15. CHANTIX [Concomitant]
  16. PROTONIX [Concomitant]
  17. COMPAZINE [Concomitant]
  18. ROBINUL [Concomitant]
  19. REGLAN [Concomitant]
  20. ZANTAC [Concomitant]
  21. DEMEROL [Concomitant]
  22. FENTANYL [Concomitant]
  23. PROSTIGMIN BROMIDE [Concomitant]
  24. PRILOSEC [Concomitant]

REACTIONS (8)
  - DIARRHOEA [None]
  - ABDOMINAL PAIN [None]
  - NAUSEA [None]
  - VOMITING [None]
  - ABDOMINAL PAIN UPPER [None]
  - ABDOMINAL TENDERNESS [None]
  - CHOLECYSTITIS ACUTE [None]
  - BACK PAIN [None]
